FAERS Safety Report 8795126 (Version 2)
Quarter: 2015Q2

REPORT INFORMATION
  Report Type: Report from Study
  Country: US (occurrence: US)
  Receive Date: 20120917
  Receipt Date: 20150401
  Transmission Date: 20150821
  Serious: Yes (Death)
  Sender: FDA-Public Use
  Company Number: US-ROCHE-1128073

PATIENT
  Sex: Female

DRUGS (14)
  1. ZOMETA [Concomitant]
     Active Substance: ZOLEDRONIC ACID
     Dosage: OVER 30 MIN
     Route: 042
     Dates: start: 20050928
  2. MONOPRIL [Concomitant]
     Active Substance: FOSINOPRIL SODIUM
     Route: 065
  3. NAVELBINE [Concomitant]
     Active Substance: VINORELBINE TARTRATE
  4. FASLODEX [Concomitant]
     Active Substance: FULVESTRANT
     Route: 065
  5. FASLODEX [Concomitant]
     Active Substance: FULVESTRANT
     Route: 065
  6. TYLENOL [Concomitant]
     Active Substance: ACETAMINOPHEN
     Dosage: FOR SLEEP?PM
     Route: 065
  7. AVASTIN [Suspect]
     Active Substance: BEVACIZUMAB
     Indication: BREAST CANCER FEMALE
     Route: 042
     Dates: start: 20050928
  8. LEVOXYL [Concomitant]
     Active Substance: LEVOTHYROXINE SODIUM
     Route: 065
  9. PRILOSEC [Concomitant]
     Active Substance: OMEPRAZOLE MAGNESIUM
     Dosage: EVERY AM
     Route: 065
  10. ARANESP [Concomitant]
     Active Substance: DARBEPOETIN ALFA
  11. ABRAXANE [Concomitant]
     Active Substance: PACLITAXEL
  12. ZOFRAN [Concomitant]
     Active Substance: ONDANSETRON HYDROCHLORIDE
  13. XELODA [Suspect]
     Active Substance: CAPECITABINE
     Indication: PRODUCT USED FOR UNKNOWN INDICATION
     Route: 065
  14. TAXOTERE [Concomitant]
     Active Substance: DOCETAXEL

REACTIONS (11)
  - Urinary tract infection [Unknown]
  - Pleural effusion [Unknown]
  - Back pain [Unknown]
  - Dizziness [Unknown]
  - Pyrexia [Unknown]
  - Fatigue [Unknown]
  - Vertigo [Unknown]
  - Death [Fatal]
  - Decreased appetite [Unknown]
  - Drug intolerance [Unknown]
  - Metastases to liver [Unknown]
